FAERS Safety Report 5428068-4 (Version None)
Quarter: 2007Q3

REPORT INFORMATION
  Report Type: 
  Country: None (occurrence: None)
  Receive Date: 20070828
  Receipt Date: 20070816
  Transmission Date: 20080115
  Serious: Yes (Other)
  Sender: FDA-Public Use
  Company Number: AR-PFIZER INC-2007067199

PATIENT
  Sex: Female
  Weight: 60 kg

DRUGS (7)
  1. CHAMPIX [Suspect]
     Indication: TOBACCO ABUSE
     Route: 048
  2. CARVEDILOL [Concomitant]
     Route: 048
  3. GLIOTEN [Concomitant]
     Route: 048
  4. ESCITALOPRAM OXALATE [Concomitant]
  5. ALL OTHER THERAPEUTIC PRODUCTS [Concomitant]
  6. LEVOTHYROXINE SODIUM [Concomitant]
     Route: 048
  7. BUDESONIDE [Concomitant]
     Route: 055

REACTIONS (2)
  - FUNGAL INFECTION [None]
  - OEDEMA PERIPHERAL [None]
